FAERS Safety Report 25658068 (Version 1)
Quarter: 2025Q3

REPORT INFORMATION
  Report Type: Spontaneous
  Country: US (occurrence: US)
  Receive Date: 20250808
  Receipt Date: 20250808
  Transmission Date: 20251021
  Serious: Yes (Hospitalization)
  Sender: SANOFI AVENTIS
  Company Number: US-SA-2025SA219082

PATIENT
  Age: 5 Year
  Sex: Male
  Weight: 27.9 kg

DRUGS (20)
  1. FABRAZYME [Suspect]
     Active Substance: AGALSIDASE BETA
     Indication: Fabry^s disease
     Dosage: 1 MG/KG, BIM
     Route: 042
     Dates: start: 200902, end: 200909
  2. FABRAZYME [Suspect]
     Active Substance: AGALSIDASE BETA
     Route: 042
     Dates: start: 200909
  3. REPLAGAL [Concomitant]
     Active Substance: AGALSIDASE ALFA
     Indication: Fabry^s disease
     Dosage: UNK UNK, QOW
     Route: 042
     Dates: start: 20100617
  4. GABAPENTIN [Concomitant]
     Active Substance: GABAPENTIN
     Indication: Pain
     Dosage: 750 MG, QD
  5. GABAPENTIN [Concomitant]
     Active Substance: GABAPENTIN
  6. Neurotin [Concomitant]
     Indication: Pain
     Dosage: LOW DOSE USING BID
  7. Neurotin [Concomitant]
     Indication: Headache
     Dosage: 100 MG, TID
     Dates: start: 200811
  8. Neurotin [Concomitant]
     Dosage: 150 MG, TID
  9. Neurotin [Concomitant]
     Dosage: 300 MG, TID
  10. Neurotin [Concomitant]
     Dosage: 75 MG, QD (DIVIDED INTO THREE DOSES)
  11. Neurotin [Concomitant]
  12. Neurotin [Concomitant]
     Route: 048
  13. NASONEX [Concomitant]
     Active Substance: MOMETASONE FUROATE
  14. VITAMIN D NOS [Concomitant]
     Active Substance: CHOLECALCIFEROL\ERGOCALCIFEROL
  15. IBUPROFEN [Concomitant]
     Active Substance: IBUPROFEN
  16. TYLENOL [Concomitant]
     Active Substance: ACETAMINOPHEN
  17. AMITRIPTYLINE [Concomitant]
     Active Substance: AMITRIPTYLINE
     Indication: Pain
  18. AMITRIPTYLINE [Concomitant]
     Active Substance: AMITRIPTYLINE
     Indication: Headache
     Dosage: 5 MG, Q.H.S
  19. TEGRETOL [Concomitant]
     Active Substance: CARBAMAZEPINE
     Indication: Pain management
  20. ATIVAN [Concomitant]
     Active Substance: LORAZEPAM

REACTIONS (37)
  - Gastroenteritis viral [Unknown]
  - Pharyngitis streptococcal [Unknown]
  - Carbon dioxide decreased [Unknown]
  - Vomiting [Unknown]
  - Blood glucose decreased [Unknown]
  - Sinusitis [Unknown]
  - Nasal crusting [Unknown]
  - Eustachian tube dysfunction [Unknown]
  - Poor venous access [Unknown]
  - Upper respiratory tract infection [Unknown]
  - Nasopharyngitis [Unknown]
  - Condition aggravated [Unknown]
  - Oropharyngeal pain [Unknown]
  - Nausea [Unknown]
  - Vomiting [Unknown]
  - Cough [Unknown]
  - Pyrexia [Unknown]
  - Rhinorrhoea [Unknown]
  - Anxiety [Unknown]
  - Diarrhoea [Unknown]
  - Skin burning sensation [Unknown]
  - Molluscum contagiosum [Unknown]
  - Hyperthermia [Unknown]
  - Rash pruritic [Unknown]
  - Adenoidal hypertrophy [Unknown]
  - Drooling [Unknown]
  - Condition aggravated [Unknown]
  - Nasopharyngitis [Unknown]
  - Disturbance in attention [Unknown]
  - Dysuria [Unknown]
  - Ataxia [Unknown]
  - Fabry^s disease [Unknown]
  - Condition aggravated [Unknown]
  - Pain [Unknown]
  - Hypohidrosis [Unknown]
  - Temperature intolerance [Unknown]
  - Incorrect dose administered [Unknown]

NARRATIVE: CASE EVENT DATE: 20090101
